FAERS Safety Report 21499281 (Version 1)
Quarter: 2022Q4

REPORT INFORMATION
  Report Type: Spontaneous
  Country: US (occurrence: None)
  Receive Date: 20221023
  Receipt Date: 20221023
  Transmission Date: 20230113
  Serious: Yes (Other)
  Sender: FDA-Public Use
  Company Number: None

PATIENT
  Age: 7 Year
  Sex: Female

DRUGS (1)
  1. PREMARIN [Suspect]
     Active Substance: ESTROGENS, CONJUGATED
     Indication: Genital labial adhesions
     Dosage: FREQUENCY : AS NEEDED;?
     Route: 061
     Dates: start: 20160215, end: 20220301

REACTIONS (2)
  - Pelvic pain [None]
  - Vulval disorder [None]

NARRATIVE: CASE EVENT DATE: 20160412
